FAERS Safety Report 5069213-2 (Version None)
Quarter: 2006Q3

REPORT INFORMATION
  Report Type: 
  Country: None (occurrence: None)
  Receive Date: 20060803
  Receipt Date: 20060724
  Transmission Date: 20061208
  Serious: Yes (Other)
  Sender: FDA-Public Use
  Company Number: IT-JNJFOC-20040400674

PATIENT
  Age: 63 Year
  Sex: Female

DRUGS (3)
  1. REMICADE [Suspect]
     Indication: CROHN'S DISEASE
     Route: 042
  2. CORTICOSTEROIDS [Concomitant]
  3. ANTIBIOTICS [Concomitant]

REACTIONS (4)
  - DYSPNOEA [None]
  - FACE OEDEMA [None]
  - PYREXIA [None]
  - RASH [None]
